FAERS Safety Report 6999762-9 (Version None)
Quarter: 2010Q3

REPORT INFORMATION
  Report Type: 
  Country: None (occurrence: None)
  Receive Date: 20100920
  Receipt Date: 20100622
  Transmission Date: 20110219
  Serious: No
  Sender: FDA-Public Use
  Company Number: US-ASTRAZENECA-2010SE27128

PATIENT
  Age: 4391 Day
  Sex: Male
  Weight: 45.4 kg

DRUGS (4)
  1. SEROQUEL [Suspect]
     Indication: BIPOLAR DISORDER
     Route: 048
     Dates: start: 20100528, end: 20100603
  2. SEROQUEL [Suspect]
     Route: 048
     Dates: start: 20100604
  3. SEROQUEL [Suspect]
     Route: 048
  4. TENEX [Concomitant]

REACTIONS (5)
  - ANGER [None]
  - DECREASED APPETITE [None]
  - DIZZINESS [None]
  - FATIGUE [None]
  - HOSTILITY [None]
